FAERS Safety Report 5411308-5 (Version None)
Quarter: 2007Q3

REPORT INFORMATION
  Report Type: 
  Country: None (occurrence: None)
  Receive Date: 20070808
  Receipt Date: 20070713
  Transmission Date: 20080115
  Serious: Yes (Disabling, Congenital Anomaly)
  Sender: FDA-Public Use
  Company Number: 6036120

PATIENT
  Sex: Female

DRUGS (3)
  1. CITALOPRAM HYDROBROMIDE [Suspect]
     Indication: ANXIETY
     Dosage: (20 MG)
     Dates: start: 20020201
  2. CITALOPRAM HYDROBROMIDE [Suspect]
     Indication: DEPRESSION
     Dosage: (20 MG)
     Dates: start: 20020201
  3. ST. JOHN'S WORT (HYPERICUM PERFORATUM) [Concomitant]

REACTIONS (1)
  - ACQUIRED EPILEPTIC APHASIA [None]
